FAERS Safety Report 7955117-1 (Version None)
Quarter: 2011Q4

REPORT INFORMATION
  Report Type: 
  Country: None (occurrence: None)
  Receive Date: 20111202
  Receipt Date: 20111125
  Transmission Date: 20120403
  Serious: Yes (Other)
  Sender: FDA-Public Use
  Company Number: CHPA2011JP016905

PATIENT
  Sex: Female

DRUGS (1)
  1. NICOTINE [Suspect]
     Indication: SMOKING CESSATION THERAPY
     Dosage: 35 MG, QD
     Route: 062
     Dates: start: 20111015, end: 20111015

REACTIONS (5)
  - HYPOAESTHESIA [None]
  - DIARRHOEA [None]
  - NAUSEA [None]
  - DYSSTASIA [None]
  - HYPERHIDROSIS [None]
